FAERS Safety Report 16695318 (Version 1)
Quarter: 2019Q3

REPORT INFORMATION
  Report Type: Spontaneous
  Country: US (occurrence: US)
  Receive Date: 20190813
  Receipt Date: 20190813
  Transmission Date: 20191004
  Serious: No
  Sender: FDA-Public Use
  Company Number: US-009507513-1908USA003605

PATIENT
  Age: 32 Year
  Sex: Female

DRUGS (3)
  1. ENDOMETRIN [Concomitant]
     Active Substance: PROGESTERONE
     Dosage: 100 MILLIGRAM, TID
     Route: 067
     Dates: start: 201906
  2. PROGESTERONE. [Suspect]
     Active Substance: PROGESTERONE
     Indication: INFERTILITY
     Dosage: UNK, QD (STRENGTH: 50 MG/ ML)
     Route: 030
     Dates: start: 20190627
  3. GANIRELIX ACETATE INJECTION [Suspect]
     Active Substance: GANIRELIX ACETATE
     Indication: INFERTILITY
     Dosage: WHEN DIRECTED
     Route: 058
     Dates: start: 20160803

REACTIONS (2)
  - Abdominal distension [Unknown]
  - Muscle spasms [Unknown]

NARRATIVE: CASE EVENT DATE: 201906
